FAERS Safety Report 5288105-7 (Version None)
Quarter: 2007Q2

REPORT INFORMATION
  Report Type: 
  Country: None (occurrence: None)
  Receive Date: 20070402
  Receipt Date: 20070402
  Transmission Date: 20071010
  Serious: Yes (Disabling)
  Sender: FDA-Public Use
  Company Number: None

PATIENT
  Age: 60 Year
  Sex: Female
  Weight: 57.1532 kg

DRUGS (4)
  1. LEVAQUIN [Suspect]
     Indication: SINUSITIS
     Dosage: 750MG ONCE A DAY PO
     Route: 048
     Dates: start: 20070313, end: 20070317
  2. ZYRTEC [Concomitant]
  3. SINGULAIR [Concomitant]
  4. PREMPRO [Concomitant]

REACTIONS (5)
  - AUTOIMMUNE DISORDER [None]
  - MOBILITY DECREASED [None]
  - PAIN [None]
  - PERFORMANCE STATUS DECREASED [None]
  - TENDON PAIN [None]
